FAERS Safety Report 9885508 (Version 1)
Quarter: 2014Q1

REPORT INFORMATION
  Report Type: Spontaneous
  Country: FR (occurrence: FR)
  Receive Date: 20140210
  Receipt Date: 20140210
  Transmission Date: 20141002
  Serious: Yes (Hospitalization, Other)
  Sender: FDA-Public Use
  Company Number: FR-PFIZER INC-2014032666

PATIENT
  Age: 42 Year
  Sex: Male

DRUGS (13)
  1. ADVIL [Suspect]
     Indication: HEADACHE
     Dosage: 200 MG, 3X/DAY, AS NEEDED
     Route: 048
     Dates: start: 20131205, end: 20131217
  2. PARACETAMOL [Suspect]
     Dosage: 1 G, 4X/DAY, AS NEEDED
     Route: 048
     Dates: start: 201312, end: 20131217
  3. PARACETAMOL [Suspect]
     Dosage: 1 G, DAILY
     Route: 042
     Dates: start: 20131219, end: 20131220
  4. PARACETAMOL [Suspect]
     Dosage: 3 G, DAILY
     Dates: start: 20131221, end: 20131221
  5. PARACETAMOL [Suspect]
     Dosage: 2 G, DAILY
     Dates: start: 20131222, end: 20131222
  6. LAMALINE [Suspect]
     Dosage: 1 DF, 1X/DAY
     Route: 054
     Dates: start: 20131222, end: 20131222
  7. BIPROFENID LP [Suspect]
     Indication: HEADACHE
     Dosage: 100 MG, 3X/DAY
     Route: 048
     Dates: start: 20131205, end: 20131219
  8. ALPRAZOLAM [Concomitant]
     Dosage: 0.25 MG, DAILY
     Dates: start: 2004
  9. SEROPLEX [Concomitant]
     Dosage: 10 MG
     Dates: start: 2004
  10. VOGALENE [Concomitant]
     Indication: VOMITING
     Dosage: UNK
     Dates: start: 201312
  11. VOGALENE [Concomitant]
     Dosage: UNK
     Dates: start: 20131220, end: 20131220
  12. VOGALENE [Concomitant]
     Dosage: UNK
     Dates: start: 20131222, end: 20131222
  13. EUPHYTOSE [Concomitant]

REACTIONS (1)
  - Hepatocellular injury [Recovered/Resolved]
